FAERS Safety Report 12400850 (Version 1)
Quarter: 2016Q2

REPORT INFORMATION
  Report Type: Spontaneous
  Country: US (occurrence: None)
  Receive Date: 20160524
  Receipt Date: 20160524
  Transmission Date: 20160815
  Serious: Yes (Life-Threatening, Hospitalization, Disabling)
  Sender: FDA-Public Use
  Company Number: None

PATIENT
  Age: 55 Year
  Sex: Female
  Weight: 61.24 kg

DRUGS (12)
  1. CLONAZEPAM. [Concomitant]
     Active Substance: CLONAZEPAM
  2. REBETOL [Suspect]
     Active Substance: RIBAVIRIN
  3. HYDROXYZINE PAMOATE. [Concomitant]
     Active Substance: HYDROXYZINE PAMOATE
  4. PROMETHAZINE [Concomitant]
     Active Substance: PROMETHAZINE\PROMETHAZINE HYDROCHLORIDE
  5. BENTYL [Concomitant]
     Active Substance: DICYCLOMINE HYDROCHLORIDE
  6. GABAPENTIN. [Concomitant]
     Active Substance: GABAPENTIN
  7. RIBAVIRIN. [Suspect]
     Active Substance: RIBAVIRIN
     Indication: HEPATITIS C
     Dosage: 200MG 5X DAY 2 IN MORNING 3-NITE MOUTH
     Route: 048
     Dates: start: 20160108, end: 20160224
  8. NEURONTIN [Concomitant]
     Active Substance: GABAPENTIN
  9. ZANAFLEX [Suspect]
     Active Substance: TIZANIDINE HYDROCHLORIDE
  10. VIRAZOLE [Suspect]
     Active Substance: RIBAVIRIN
  11. SEROQUEL [Concomitant]
     Active Substance: QUETIAPINE FUMARATE
  12. COPEGUS [Suspect]
     Active Substance: RIBAVIRIN

REACTIONS (12)
  - Rash [None]
  - Photopsia [None]
  - Heart rate irregular [None]
  - Vision blurred [None]
  - Dyspnoea [None]
  - Fatigue [None]
  - Chest pain [None]
  - Dyspepsia [None]
  - Nausea [None]
  - Chills [None]
  - Pain in extremity [None]
  - Dizziness [None]

NARRATIVE: CASE EVENT DATE: 20151212
